FAERS Safety Report 26124087 (Version 1)
Quarter: 2025Q4

REPORT INFORMATION
  Report Type: Spontaneous
  Country: EU (occurrence: EU)
  Receive Date: 20251205
  Receipt Date: 20251205
  Transmission Date: 20260118
  Serious: Yes (Hospitalization, Other)
  Sender: ROCHE
  Company Number: None

PATIENT
  Age: 69 Year
  Sex: Female

DRUGS (11)
  1. BEVACIZUMAB [Suspect]
     Active Substance: BEVACIZUMAB
     Indication: Colorectal adenocarcinoma
     Dosage: UNK
     Route: 065
  2. VECTIBIX [Suspect]
     Active Substance: PANITUMUMAB
     Indication: Colorectal adenocarcinoma
     Dosage: UNK
     Route: 065
     Dates: start: 20200420
  3. VECTIBIX [Suspect]
     Active Substance: PANITUMUMAB
     Route: 065
  4. VECTIBIX [Suspect]
     Active Substance: PANITUMUMAB
     Route: 065
  5. OXALIPLATIN [Suspect]
     Active Substance: OXALIPLATIN
     Indication: Colorectal adenocarcinoma
     Dosage: UNK
     Route: 065
     Dates: start: 20200420
  6. OXALIPLATIN [Suspect]
     Active Substance: OXALIPLATIN
     Route: 065
  7. Xeliri [Concomitant]
     Indication: Colorectal adenocarcinoma
     Dosage: UNK
     Route: 065
  8. LEUCOVORIN [Concomitant]
     Active Substance: LEUCOVORIN\LEUCOVORIN CALCIUM
     Dosage: UNK
     Dates: start: 20200420
  9. FLUOROURACIL [Concomitant]
     Active Substance: FLUOROURACIL
     Dosage: UNK
     Dates: start: 20200420
  10. XARELTO [Concomitant]
     Active Substance: RIVAROXABAN
     Dosage: 20 UNK, QD
  11. LONSURF [Concomitant]
     Active Substance: TIPIRACIL HYDROCHLORIDE\TRIFLURIDINE
     Dosage: UNK

REACTIONS (11)
  - Colorectal adenocarcinoma [Unknown]
  - Polyneuropathy [Unknown]
  - Illness [Unknown]
  - Abscess limb [Unknown]
  - Stoma site rash [Unknown]
  - Abdominal hernia [Unknown]
  - Skin toxicity [Unknown]
  - Diarrhoea [Unknown]
  - Skin lesion [Unknown]
  - Erythema [Unknown]
  - Proctalgia [Unknown]

NARRATIVE: CASE EVENT DATE: 20250101
